FAERS Safety Report 5623530-3 (Version None)
Quarter: 2008Q1

REPORT INFORMATION
  Report Type: 
  Country: None (occurrence: None)
  Receive Date: 20080212
  Receipt Date: 20080201
  Transmission Date: 20080703
  Serious: Yes (Hospitalization, Other)
  Sender: FDA-Public Use
  Company Number: US-ELI_LILLY_AND_COMPANY-US200802000301

PATIENT
  Sex: Female

DRUGS (5)
  1. HUMALOG MIX 75/25 [Suspect]
  2. SYNTHROID [Concomitant]
     Dosage: 150 MG, UNK
  3. NEXIUM [Concomitant]
  4. OXYCONTIN [Concomitant]
  5. LACTULOSE [Concomitant]

REACTIONS (12)
  - ARTHRALGIA [None]
  - BLOOD GLUCOSE INCREASED [None]
  - COMA [None]
  - DRUG INEFFECTIVE [None]
  - FALL [None]
  - HAEMORRHAGE [None]
  - HEPATIC CIRRHOSIS [None]
  - HYPOTHYROIDISM [None]
  - INJECTION SITE BRUISING [None]
  - INJECTION SITE IRRITATION [None]
  - OSTEOPOROSIS [None]
  - VARICES OESOPHAGEAL [None]
